FAERS Safety Report 8557050-3 (Version None)
Quarter: 2012Q3

REPORT INFORMATION
  Report Type: 
  Country: None (occurrence: None)
  Receive Date: 20120801
  Receipt Date: 20120719
  Transmission Date: 20120928
  Serious: Yes (Other)
  Sender: FDA-Public Use
  Company Number: US-ROCHE-1090608

PATIENT
  Sex: Female
  Weight: 75.364 kg

DRUGS (5)
  1. GEMCITABINE [Concomitant]
  2. CARBOPLATIN [Concomitant]
  3. TAXOTERE [Concomitant]
     Dates: start: 20110901
  4. NAVELBINE [Concomitant]
  5. HERCEPTIN [Suspect]
     Indication: BREAST CANCER METASTATIC
     Dates: end: 20090401

REACTIONS (7)
  - LUNG DISORDER [None]
  - NEUROPATHY PERIPHERAL [None]
  - VOMITING [None]
  - FATIGUE [None]
  - HEPATIC NEOPLASM MALIGNANT [None]
  - EJECTION FRACTION DECREASED [None]
  - ASTHENIA [None]
